FAERS Safety Report 7855483 (Version 3)
Quarter: 2014Q1

REPORT INFORMATION
  Report Type: Spontaneous
  Country: US (occurrence: US)
  Receive Date: 20110315
  Receipt Date: 20140115
  Transmission Date: 20141002
  Serious: Yes (Hospitalization)
  Sender: FDA-Public Use
  Company Number: US-BAYER-2011-022530

PATIENT
  Age: 24 Year
  Sex: Female
  Weight: 73.92 kg

DRUGS (2)
  1. YAZ [Suspect]
     Indication: CONTRACEPTION
     Dosage: UNK
     Dates: start: 200709, end: 201009
  2. YAZ [Suspect]
     Indication: ACNE

REACTIONS (5)
  - Cholecystitis acute [None]
  - Gallbladder disorder [None]
  - Dyspepsia [None]
  - Procedural pain [None]
  - Abdominal pain [None]
